FAERS Safety Report 16811142 (Version 2)
Quarter: 2019Q4

REPORT INFORMATION
  Report Type: Spontaneous
  Country: JP (occurrence: JP)
  Receive Date: 20190916
  Receipt Date: 20191002
  Transmission Date: 20200122
  Serious: Yes (Hospitalization, Other)
  Sender: FDA-Public Use
  Company Number: JP-PFIZER INC-2019337388

PATIENT
  Age: 77 Year
  Sex: Female
  Weight: 50 kg

DRUGS (6)
  1. EFFEXOR [Interacting]
     Active Substance: VENLAFAXINE HYDROCHLORIDE
     Dosage: 75 MG, 1X/DAY
     Route: 048
     Dates: start: 20190722, end: 20190801
  2. WYPAX [Concomitant]
     Active Substance: LORAZEPAM
     Indication: ANXIETY
     Dosage: 0.5 MG, 1X/DAY
     Route: 048
     Dates: start: 20190603, end: 20190801
  3. JZOLOFT OD [Interacting]
     Active Substance: SERTRALINE HYDROCHLORIDE
     Indication: DEPRESSION
     Dosage: 75 MG, 1X/DAY
     Route: 048
     Dates: start: 20190624, end: 20190721
  4. FLUNITRAZEPAM [Concomitant]
     Active Substance: FLUNITRAZEPAM
     Indication: INSOMNIA
     Dosage: UNK, 1X/DAY
     Route: 048
     Dates: start: 20180827, end: 20190801
  5. EFFEXOR [Suspect]
     Active Substance: VENLAFAXINE HYDROCHLORIDE
     Indication: DEPRESSION
     Dosage: 37.5 MG, 1X/DAY
     Route: 048
     Dates: start: 20190624, end: 20190721
  6. JZOLOFT OD [Interacting]
     Active Substance: SERTRALINE HYDROCHLORIDE
     Dosage: 50 MG, 1X/DAY
     Route: 048
     Dates: start: 20190722, end: 20190801

REACTIONS (3)
  - Drug interaction [Recovered/Resolved]
  - Vomiting [Recovered/Resolved]
  - Nausea [Recovering/Resolving]

NARRATIVE: CASE EVENT DATE: 20190801
